FAERS Safety Report 8003379-7 (Version None)
Quarter: 2011Q4

REPORT INFORMATION
  Report Type: 
  Country: None (occurrence: None)
  Receive Date: 20111222
  Receipt Date: 20111209
  Transmission Date: 20120403
  Serious: Yes (Other)
  Sender: FDA-Public Use
  Company Number: DE-CELGENEUS-062-21880-11090639

PATIENT
  Age: 79 Year
  Sex: Female
  Weight: 76 kg

DRUGS (6)
  1. PANTOPRAZOLE SODIUM [Concomitant]
     Route: 065
  2. RAMIPRIL [Concomitant]
     Indication: HYPOTENSION
     Route: 065
  3. REVLIMID [Suspect]
     Indication: 5Q MINUS SYNDROME
     Dosage: 10 MILLIGRAM
     Route: 048
     Dates: start: 20080806, end: 20090615
  4. BISOPROLOL FUMARATE [Concomitant]
     Route: 065
  5. HYDROCHLOROTHIAZIDE [Concomitant]
     Indication: HYPOTENSION
     Route: 065
  6. ACETYLSALICYLIC ACID SRT [Concomitant]
     Route: 065

REACTIONS (2)
  - MYELODYSPLASTIC SYNDROME TRANSFORMATION [None]
  - ACUTE MYELOID LEUKAEMIA [None]
